FAERS Safety Report 18073757 (Version 1)
Quarter: 2020Q3

REPORT INFORMATION
  Report Type: Spontaneous
  Country: CA (occurrence: CA)
  Receive Date: 20200727
  Receipt Date: 20200727
  Transmission Date: 20201103
  Serious: Yes (Death, Hospitalization, Other)
  Sender: FDA-Public Use
  Company Number: CA-ALLERGAN-2027614US

PATIENT
  Sex: Female
  Weight: 51 kg

DRUGS (16)
  1. IMODIUM [Concomitant]
     Active Substance: LOPERAMIDE HYDROCHLORIDE
  2. FLOVENT [Concomitant]
     Active Substance: FLUTICASONE PROPIONATE
  3. SERAX [Concomitant]
     Active Substance: OXAZEPAM
  4. TYLENOL [Concomitant]
     Active Substance: ACETAMINOPHEN
  5. DORZOLAMIDE TIMOLOL [Concomitant]
     Active Substance: DORZOLAMIDE
     Route: 047
  6. ULTRADOL                           /00599202/ [Concomitant]
  7. LATANOPROST. [Concomitant]
     Active Substance: LATANOPROST
     Route: 047
  8. DICLOFENAC [Concomitant]
     Active Substance: DICLOFENAC
  9. ELIQUIS [Concomitant]
     Active Substance: APIXABAN
  10. VENTOLIN [Concomitant]
     Active Substance: ALBUTEROL SULFATE
  11. LYRICA [Concomitant]
     Active Substance: PREGABALIN
  12. NORVASC [Concomitant]
     Active Substance: AMLODIPINE BESYLATE
  13. FOSFOMYCIN TROMETHAMINE ? BP [Suspect]
     Active Substance: FOSFOMYCIN TROMETHAMINE
     Indication: URINARY TRACT INFECTION
     Dosage: 3 G, SINGLE
     Route: 048
  14. BISOPROLOL [Concomitant]
     Active Substance: BISOPROLOL
  15. PLAVIX [Concomitant]
     Active Substance: CLOPIDOGREL BISULFATE
  16. SYNTHROID [Concomitant]
     Active Substance: LEVOTHYROXINE SODIUM

REACTIONS (6)
  - Erythema [Fatal]
  - Pruritus [Fatal]
  - Rash papular [Fatal]
  - Condition aggravated [Fatal]
  - Arthralgia [Fatal]
  - Oral pain [Fatal]
